FAERS Safety Report 10694674 (Version 4)
Quarter: 2015Q3

REPORT INFORMATION
  Report Type: Spontaneous
  Country: US (occurrence: US)
  Receive Date: 20150107
  Receipt Date: 20150904
  Transmission Date: 20151125
  Serious: Yes (Hospitalization, Other)
  Sender: FDA-Public Use
  Company Number: US-BAYER-2015-001534

PATIENT
  Age: 23 Year
  Sex: Female
  Weight: 75 kg

DRUGS (5)
  1. MIRENA [Suspect]
     Active Substance: LEVONORGESTREL
     Indication: MENORRHAGIA
  2. FLAGYL [Concomitant]
     Active Substance: METRONIDAZOLE\METRONIDAZOLE HYDROCHLORIDE
  3. MIRENA [Suspect]
     Active Substance: LEVONORGESTREL
     Indication: CONTRACEPTION
     Dosage: 20 MCG/24HR, CONT
     Route: 015
     Dates: start: 20030501, end: 200711
  4. ALBUTEROL. [Concomitant]
     Active Substance: ALBUTEROL
     Indication: ASTHMA
     Dosage: UNK
     Dates: start: 2000
  5. TOPIRAMATE. [Concomitant]
     Active Substance: TOPIRAMATE
     Dosage: UNK
     Dates: start: 1995

REACTIONS (12)
  - Ectopic pregnancy with contraceptive device [None]
  - Injury [None]
  - Emotional distress [None]
  - Drug ineffective [None]
  - Device issue [None]
  - Abdominal pain [None]
  - Scar [None]
  - Depression [None]
  - Anxiety [None]
  - Device breakage [None]
  - Fallopian tube obstruction [None]
  - Embedded device [None]

NARRATIVE: CASE EVENT DATE: 2004
